FAERS Safety Report 5809330-X (Version None)
Quarter: 2008Q3

REPORT INFORMATION
  Report Type: 
  Country: None (occurrence: None)
  Receive Date: 20080714
  Receipt Date: 20080708
  Transmission Date: 20090109
  Serious: Yes (Hospitalization, Other)
  Sender: FDA-Public Use
  Company Number: US-BAXTER-2008BH006376

PATIENT
  Age: 43 Year
  Sex: Female
  Weight: 117 kg

DRUGS (3)
  1. HEPARIN SODIUM INJECTION [Suspect]
     Indication: THROMBOSIS PROPHYLAXIS
     Route: 058
     Dates: start: 20080101, end: 20080101
  2. COUMADIN [Concomitant]
     Indication: THROMBOSIS
     Dosage: DOSE UNIT:UNKNOWN
     Route: 065
     Dates: end: 20080101
  3. COUMADIN [Concomitant]
     Dosage: DOSE UNIT:UNKNOWN
     Route: 065

REACTIONS (7)
  - ARTERIAL THROMBOSIS [None]
  - COAGULOPATHY [None]
  - HYPERHOMOCYSTEINAEMIA [None]
  - INTERNATIONAL NORMALISED RATIO ABNORMAL [None]
  - PROTHROMBIN TIME ABNORMAL [None]
  - PULSE ABSENT [None]
  - UNDERDOSE [None]
